FAERS Safety Report 20460020 (Version 2)
Quarter: 2022Q1

REPORT INFORMATION
  Report Type: Spontaneous
  Country: US (occurrence: US)
  Receive Date: 20220211
  Receipt Date: 20220217
  Transmission Date: 20220423
  Serious: No
  Sender: FDA-Public Use
  Company Number: US-SANOFI-00967280

PATIENT

DRUGS (1)
  1. DUPIXENT [Suspect]
     Active Substance: DUPILUMAB
     Dosage: UNK
     Dates: start: 20220116

REACTIONS (3)
  - Injection site oedema [Unknown]
  - Injection site erythema [Unknown]
  - Injection site plaque [Unknown]

NARRATIVE: CASE EVENT DATE: 20220101
